FAERS Safety Report 18087711 (Version 1)
Quarter: 2020Q3

REPORT INFORMATION
  Report Type: Spontaneous
  Country: US (occurrence: US)
  Receive Date: 20200729
  Receipt Date: 20200729
  Transmission Date: 20201103
  Serious: Yes (Other)
  Sender: FDA-Public Use
  Company Number: US-FRESENIUS KABI-FK202007772

PATIENT
  Age: 52 Year
  Sex: Female

DRUGS (3)
  1. METOPROLOL INJECTION (MANUFACTURER UNKNOWN) [Suspect]
     Active Substance: METOPROLOL
     Indication: HYPERTENSION
     Dosage: UNKNOWN
     Route: 042
  2. CLONIDINE. [Suspect]
     Active Substance: CLONIDINE
     Indication: HOT FLUSH
     Route: 065
  3. HYPERICUM PERFORATUM [Concomitant]
     Active Substance: HYPERICUM PERFORATUM WHOLE
     Indication: ANXIETY
     Dosage: UNKNOWN
     Route: 065

REACTIONS (5)
  - Pulmonary oedema [Recovered/Resolved]
  - Hypertension [Recovered/Resolved]
  - Sinus tachycardia [Recovered/Resolved]
  - Vasoconstriction [Recovered/Resolved]
  - Systolic dysfunction [Recovered/Resolved]
